FAERS Safety Report 18206218 (Version 1)
Quarter: 2020Q3

REPORT INFORMATION
  Report Type: Spontaneous
  Country: ES (occurrence: ES)
  Receive Date: 20200827
  Receipt Date: 20200827
  Transmission Date: 20201103
  Serious: Yes (Other)
  Sender: FDA-Public Use
  Company Number: ES-US-PROVELL PHARMACEUTICALS LLC-E2B_90079425

PATIENT
  Age: 65 Year
  Sex: Female

DRUGS (3)
  1. EUTIROX [Suspect]
     Active Substance: LEVOTHYROXINE SODIUM
     Indication: PRODUCT USED FOR UNKNOWN INDICATION
     Dosage: 25+12.5
  2. EUTIROX [Suspect]
     Active Substance: LEVOTHYROXINE SODIUM
     Dosage: DISCONTINUED THERAPY
  3. EUTIROX [Suspect]
     Active Substance: LEVOTHYROXINE SODIUM
     Dosage: RESTARTED AT A LOWER DOSE (1 TABLET)

REACTIONS (7)
  - Vertigo [Unknown]
  - Hallucination [Unknown]
  - Thyroid disorder [Unknown]
  - Hypothyroidism [Unknown]
  - Dizziness [Not Recovered/Not Resolved]
  - Treatment noncompliance [Recovered/Resolved]
  - Intentional product use issue [Unknown]
